FAERS Safety Report 13713844 (Version 6)
Quarter: 2018Q1

REPORT INFORMATION
  Report Type: Report from Study
  Country: None (occurrence: CH)
  Receive Date: 20170704
  Receipt Date: 20180208
  Transmission Date: 20180508
  Serious: Yes (Life-Threatening, Hospitalization, Other)
  Sender: FDA-Public Use
  Company Number: CH-ABBVIE-17K-151-2027742-00

PATIENT
  Age: 67 Year
  Sex: Female
  Weight: 116 kg

DRUGS (1)
  1. DUODOPA [Suspect]
     Active Substance: CARBIDOPA\LEVODOPA
     Indication: PARKINSON^S DISEASE
     Dosage: MD:3.0ML,CD 7 ML/H, CONTINUOUS RATE NIGHT 5.5ML/H, EXTRA DOSE 3.0ML, 24H THERAPY
     Route: 050
     Dates: start: 20121126, end: 20170623

REACTIONS (9)
  - Sepsis [Recovered/Resolved]
  - Gastrointestinal necrosis [Recovering/Resolving]
  - Intestinal sepsis [Unknown]
  - Ileus [Unknown]
  - Fall [Unknown]
  - Mechanical ileus [Recovered/Resolved]
  - Demyelinating polyneuropathy [Not Recovered/Not Resolved]
  - Acute motor-sensory axonal neuropathy [Not Recovered/Not Resolved]
  - Stoma site abscess [Recovered/Resolved]

NARRATIVE: CASE EVENT DATE: 2013
